FAERS Safety Report 4854309-8 (Version None)
Quarter: 2005Q4

REPORT INFORMATION
  Report Type: 
  Country: None (occurrence: None)
  Receive Date: 20051213
  Receipt Date: 20051213
  Transmission Date: 20060501
  Serious: Yes (Hospitalization)
  Sender: FDA-Public Use
  Company Number: None

PATIENT
  Age: 79 Year
  Sex: Male
  Weight: 84.369 kg

DRUGS (10)
  1. PIPERACILLIN/TAZOBACTAM  3.375 GRAMS [Suspect]
     Indication: BLOOD CULTURE POSITIVE
     Dosage: 3.375 GRAMS  Q 6 HOURS IV BOLUS
     Route: 040
     Dates: start: 20050907, end: 20050914
  2. PIPERACILLIN/TAZOBACTAM  3.375 GRAMS [Suspect]
     Indication: URINARY TRACT INFECTION
     Dosage: 3.375 GRAMS  Q 6 HOURS IV BOLUS
     Route: 040
     Dates: start: 20050907, end: 20050914
  3. FORMOTEROL [Concomitant]
  4. FLUNISOLIDE [Concomitant]
  5. RANITIDINE [Concomitant]
  6. METHYLPREDNISOLONE [Concomitant]
  7. AMIODARONE [Concomitant]
  8. ALBUTEROL SULFATE AND IPRATROPIUM BROMIDE [Concomitant]
  9. LOVENOX [Concomitant]
  10. SLIDING SCALE INSULIN [Concomitant]

REACTIONS (1)
  - THROMBOCYTOPENIA [None]
